FAERS Safety Report 8005648-3 (Version None)
Quarter: 2011Q4

REPORT INFORMATION
  Report Type: 
  Country: None (occurrence: None)
  Receive Date: 20111223
  Receipt Date: 20111220
  Transmission Date: 20120403
  Serious: Yes (Death, Hospitalization)
  Sender: FDA-Public Use
  Company Number: PL-SANOFI-AVENTIS-2011SA053241

PATIENT
  Age: 69 Year
  Sex: Male
  Weight: 89 kg

DRUGS (5)
  1. DOCETAXEL [Suspect]
     Indication: NON-SMALL CELL LUNG CANCER METASTATIC
     Dosage: DAY 1 OF EACH 21 DAY CYCLE
     Route: 041
     Dates: start: 20110420, end: 20110420
  2. DOCETAXEL [Suspect]
     Dosage: DAY 1 OF EACH 21 DAY CYCLE
     Route: 041
     Dates: start: 20110513, end: 20110513
  3. DEXAMETHASONE [Concomitant]
     Dates: start: 20110513, end: 20110515
  4. FORMOTEROL FUMARATE [Concomitant]
     Dates: start: 20110218
  5. THEOPHYLLINE [Concomitant]
     Dates: start: 20110218

REACTIONS (1)
  - ATRIAL FIBRILLATION [None]
